FAERS Safety Report 5536560-7 (Version None)
Quarter: 2007Q4

REPORT INFORMATION
  Report Type: 
  Country: None (occurrence: None)
  Receive Date: 20071204
  Receipt Date: 20071119
  Transmission Date: 20080405
  Serious: Yes (Hospitalization)
  Sender: FDA-Public Use
  Company Number: 2007SI012357

PATIENT
  Age: 11 Year
  Sex: Male

DRUGS (7)
  1. MERCAPTAMINE BITARTRATE (MERCAPTAMINE BITARTRATE) (50 MG) [Suspect]
     Indication: CYSTINOSIS
     Dosage: 160 MG
  2. CALCIDIA [Concomitant]
  3. EPOGEN [Concomitant]
  4. HUMAN GROWTH HORMONE, RECOMBINANT [Concomitant]
  5. 1-ALPHA [Concomitant]
  6. POTASSIUM BICARBONATE [Concomitant]
  7. CYSTEAMINE [Concomitant]

REACTIONS (11)
  - ANURIA [None]
  - BLOOD CREATININE INCREASED [None]
  - BLOOD POTASSIUM INCREASED [None]
  - COMA [None]
  - CONVULSION [None]
  - CSF PROTEIN INCREASED [None]
  - ELECTROENCEPHALOGRAM ABNORMAL [None]
  - HAEMODIALYSIS [None]
  - HERPES VIRUS INFECTION [None]
  - PYREXIA [None]
  - TACHYCARDIA [None]
